FAERS Safety Report 7734903-7 (Version None)
Quarter: 2011Q3

REPORT INFORMATION
  Report Type: 
  Country: None (occurrence: None)
  Receive Date: 20110907
  Receipt Date: 20110824
  Transmission Date: 20111222
  Serious: Yes (Other)
  Sender: FDA-Public Use
  Company Number: PHHY2011BR49074

PATIENT
  Sex: Female

DRUGS (10)
  1. DIOVAN [Suspect]
     Indication: CARDIAC DISORDER
     Dosage: 160 MG, QD
     Route: 048
  2. DIAMICRON [Concomitant]
     Indication: DIABETES MELLITUS
     Dosage: 30 MG, QD
     Route: 048
  3. METFORMIN HCL [Concomitant]
     Indication: DIABETES MELLITUS
     Dosage: UNK UKN, QD
     Route: 048
  4. LEVOID [Concomitant]
     Indication: THYROID DISORDER
     Dosage: 50 MG, QD
     Route: 048
  5. ASPIRIN [Concomitant]
     Indication: BLOOD DISORDER
     Dosage: 100 MG, QD
     Route: 048
  6. RASILEZ HCT [Concomitant]
     Indication: BLOOD PRESSURE
     Dosage: 150/12.5 (ALIS/HCT), QD
     Route: 048
  7. TOLREST [Concomitant]
     Indication: ANXIETY
     Dosage: 25 MG, QD
     Route: 048
  8. SEROQUEL [Concomitant]
     Indication: SLEEP DISORDER
     Dosage: 25 MG, QD
     Route: 048
  9. LASIX [Concomitant]
     Indication: DIURETIC THERAPY
     Dosage: 40 MG, QD
     Route: 048
  10. CARVEDILOL [Concomitant]
     Indication: CARDIAC DISORDER
     Dosage: 3.125 MG, BID
     Route: 048

REACTIONS (3)
  - DYSPNOEA [None]
  - HEART VALVE STENOSIS [None]
  - CARDIAC VALVE DISEASE [None]
